FAERS Safety Report 5124633-2 (Version None)
Quarter: 2006Q4

REPORT INFORMATION
  Report Type: 
  Country: None (occurrence: None)
  Receive Date: 20061006
  Receipt Date: 20061006
  Transmission Date: 20070319
  Serious: Yes (Other)
  Sender: FDA-Public Use
  Company Number: None

PATIENT
  Age: 50 Year
  Sex: Male
  Weight: 86.1834 kg

DRUGS (1)
  1. LEVAQUIN [Suspect]
     Indication: EPIDIDYMITIS
     Dosage: 500 MG ONCE-DAILY PO
     Route: 048
     Dates: start: 20060828, end: 20060924

REACTIONS (3)
  - ARTHRALGIA [None]
  - TENDON RUPTURE [None]
  - TENDONITIS [None]
